FAERS Safety Report 23786889 (Version 6)
Quarter: 2024Q3

REPORT INFORMATION
  Report Type: Report from Study
  Country: US (occurrence: US)
  Receive Date: 20240426
  Receipt Date: 20240712
  Transmission Date: 20241017
  Serious: Yes (Other)
  Sender: ABBVIE
  Company Number: US-ABBVIE-5697421

PATIENT
  Age: 66 Year
  Sex: Female

DRUGS (3)
  1. SKYRIZI [Suspect]
     Active Substance: RISANKIZUMAB-RZAA
     Indication: Psoriasis
     Dosage: LAST ADMIN DATE: SEP 2023
     Route: 058
     Dates: start: 20230901
  2. SKYRIZI [Suspect]
     Active Substance: RISANKIZUMAB-RZAA
     Dosage: STOPPED IN 2023
     Route: 058
     Dates: start: 20230822
  3. SKYRIZI [Suspect]
     Active Substance: RISANKIZUMAB-RZAA
     Route: 058
     Dates: start: 20230925

REACTIONS (6)
  - Spinal cord compression [Recovered/Resolved]
  - Surgery [Unknown]
  - Psoriasis [Recovering/Resolving]
  - Device issue [Unknown]
  - Rash macular [Unknown]
  - Device leakage [Unknown]

NARRATIVE: CASE EVENT DATE: 20240423
